FAERS Safety Report 9580468 (Version 2)
Quarter: 2013Q4

REPORT INFORMATION
  Report Type: Spontaneous
  Country: BR (occurrence: BR)
  Receive Date: 20131002
  Receipt Date: 20131002
  Transmission Date: 20140711
  Serious: Yes (Other)
  Sender: FDA-Public Use
  Company Number: BR-PFIZER INC-2009242500

PATIENT
  Age: 27 Year
  Sex: Female
  Weight: 60 kg

DRUGS (5)
  1. DEPO-PROVERA [Suspect]
     Indication: CONTRACEPTION
     Dosage: 150 MG, EVERY 3 MONTHS
     Route: 030
     Dates: start: 2007
  2. DEPO-PROVERA [Suspect]
     Indication: MENORRHAGIA
     Dosage: UNK
  3. BROMAZEPAM [Concomitant]
     Dosage: UNK
  4. METHERGIN [Concomitant]
     Dosage: UNK
  5. TRAMAL [Concomitant]
     Indication: INTERVERTEBRAL DISC PROTRUSION
     Dosage: UNK

REACTIONS (16)
  - Abortion spontaneous [Unknown]
  - Drug ineffective [Unknown]
  - Unintended pregnancy [Unknown]
  - Amenorrhoea [Not Recovered/Not Resolved]
  - Nervousness [Recovering/Resolving]
  - Metrorrhagia [Not Recovered/Not Resolved]
  - Varicose veins pelvic [Not Recovered/Not Resolved]
  - Condition aggravated [Not Recovered/Not Resolved]
  - Menorrhagia [Recovered/Resolved]
  - Breast pain [Not Recovered/Not Resolved]
  - Trichorrhexis [Unknown]
  - Pelvic pain [Not Recovered/Not Resolved]
  - Menstruation irregular [Recovered/Resolved]
  - Abdominal discomfort [Not Recovered/Not Resolved]
  - Weight increased [Not Recovered/Not Resolved]
  - Inappropriate schedule of drug administration [Unknown]
